FAERS Safety Report 22658151 (Version 1)
Quarter: 2023Q2

REPORT INFORMATION
  Report Type: Spontaneous
  Country: JP (occurrence: JP)
  Receive Date: 20230630
  Receipt Date: 20230630
  Transmission Date: 20230721
  Serious: Yes (Hospitalization)
  Sender: FDA-Public Use
  Company Number: JP-STRIDES ARCOLAB LIMITED-2023SP010308

PATIENT
  Sex: Female

DRUGS (11)
  1. TOPIRAMATE [Suspect]
     Active Substance: TOPIRAMATE
     Indication: Encephalitis autoimmune
     Dosage: UNK
     Route: 065
  2. TOPIRAMATE [Suspect]
     Active Substance: TOPIRAMATE
     Indication: Epilepsy
  3. PHENOBARBITAL [Suspect]
     Active Substance: PHENOBARBITAL
     Indication: Encephalitis autoimmune
     Dosage: UNK (ACUTE PHASE)
     Route: 042
  4. PHENOBARBITAL [Suspect]
     Active Substance: PHENOBARBITAL
     Indication: Epilepsy
     Dosage: 5 MILLIGRAM/KILOGRAM, QD (INITIAL)
     Route: 048
  5. PHENOBARBITAL [Suspect]
     Active Substance: PHENOBARBITAL
     Dosage: 8 MILLIGRAM/KILOGRAM, QD
     Route: 048
  6. NITRAZEPAM [Suspect]
     Active Substance: NITRAZEPAM
     Indication: Encephalitis autoimmune
     Dosage: 0.7 MILLIGRAM/KILOGRAM, QD
     Route: 065
  7. NITRAZEPAM [Suspect]
     Active Substance: NITRAZEPAM
     Indication: Epilepsy
  8. METHYLPREDNISOLONE [Concomitant]
     Active Substance: METHYLPREDNISOLONE
     Indication: Encephalitis autoimmune
     Dosage: UNK
     Route: 042
  9. METHYLPREDNISOLONE [Concomitant]
     Active Substance: METHYLPREDNISOLONE
     Indication: Epilepsy
  10. PROTIRELIN [Concomitant]
     Active Substance: PROTIRELIN
     Indication: Encephalitis autoimmune
     Dosage: UNK
     Route: 065
  11. PROTIRELIN [Concomitant]
     Active Substance: PROTIRELIN
     Indication: Epilepsy

REACTIONS (3)
  - Hypersomnia [Unknown]
  - Condition aggravated [Unknown]
  - Drug ineffective [Unknown]
